FAERS Safety Report 13354704 (Version 2)
Quarter: 2017Q2

REPORT INFORMATION
  Report Type: Spontaneous
  Country: FR (occurrence: FR)
  Receive Date: 20170321
  Receipt Date: 20170427
  Transmission Date: 20170830
  Serious: Yes (Other)
  Sender: FDA-Public Use
  Company Number: FR-GLAXOSMITHKLINE-FR2017GSK037441

PATIENT
  Age: 29 Year
  Sex: Female

DRUGS (1)
  1. LAMICTAL [Suspect]
     Active Substance: LAMOTRIGINE
     Indication: EPILEPSY
     Dosage: 350 MG, 1D
     Route: 048
     Dates: start: 2004

REACTIONS (3)
  - Teeth brittle [Not Recovered/Not Resolved]
  - Tooth erosion [Not Recovered/Not Resolved]
  - Tooth injury [Not Recovered/Not Resolved]

NARRATIVE: CASE EVENT DATE: 201612
